FAERS Safety Report 11582927 (Version 1)
Quarter: 2015Q4

REPORT INFORMATION
  Report Type: Spontaneous
  Country: US (occurrence: US)
  Receive Date: 20151001
  Receipt Date: 20151001
  Transmission Date: 20160304
  Serious: No
  Sender: FDA-Public Use
  Company Number: US-ROCHE-673071

PATIENT
  Age: 50 Year
  Sex: Female

DRUGS (3)
  1. RIBASPHERE [Suspect]
     Active Substance: RIBAVIRIN
     Indication: HEPATITIS C
     Dosage: IN DIVIDED DOSES
     Route: 048
  2. PEGASYS [Suspect]
     Active Substance: PEGINTERFERON ALFA-2A
     Indication: HEPATITIS C
     Dosage: FORM: PRE-FILLED SYRINGE
     Route: 058
  3. RIBAVIRIN. [Suspect]
     Active Substance: RIBAVIRIN
     Indication: HEPATITIS C
     Dosage: DIVIDED DOSES: 800 MG IN AM AND 400 MG IN PM
     Route: 048

REACTIONS (14)
  - Influenza [Unknown]
  - Nausea [Unknown]
  - Pain [Unknown]
  - Hypogeusia [Unknown]
  - Fatigue [Not Recovered/Not Resolved]
  - Headache [Unknown]
  - Pain [Unknown]
  - Abdominal pain lower [Unknown]
  - Weight decreased [Unknown]
  - Hyperhidrosis [Unknown]
  - Pallor [Unknown]
  - Amenorrhoea [Unknown]
  - Feeling hot [Unknown]
  - Decreased appetite [Unknown]

NARRATIVE: CASE EVENT DATE: 20091206
